FAERS Safety Report 16736782 (Version 1)
Quarter: 2019Q3

REPORT INFORMATION
  Report Type: Spontaneous
  Country: IT (occurrence: IT)
  Receive Date: 20190823
  Receipt Date: 20190823
  Transmission Date: 20191005
  Serious: Yes (Other)
  Sender: FDA-Public Use
  Company Number: IT-JNJFOC-20190823943

PATIENT
  Age: 18 Year
  Sex: Female
  Weight: 89 kg

DRUGS (1)
  1. TOPAMAX [Suspect]
     Active Substance: TOPIRAMATE
     Indication: PRODUCT USED FOR UNKNOWN INDICATION
     Dosage: 15 TABLETS
     Route: 048
     Dates: start: 20190817

REACTIONS (3)
  - Intentional overdose [Unknown]
  - Intentional self-injury [Unknown]
  - Asthenia [Unknown]

NARRATIVE: CASE EVENT DATE: 20190817
